FAERS Safety Report 7968185-8 (Version None)
Quarter: 2011Q4

REPORT INFORMATION
  Report Type: 
  Country: None (occurrence: None)
  Receive Date: 20111209
  Receipt Date: 20111202
  Transmission Date: 20120403
  Serious: Yes (Life-Threatening)
  Sender: FDA-Public Use
  Company Number: PHHY2011FR099478

PATIENT

DRUGS (6)
  1. PHENYLEPHRINE HCL [Concomitant]
     Dosage: 0.2 MG, UNK
     Route: 042
  2. SYNTOCINON [Suspect]
     Dosage: UNK
     Dates: start: 20110720
  3. XYLOCAINE [Concomitant]
     Dosage: UNK
     Route: 008
     Dates: start: 20110720
  4. MIDAZOLAM HCL [Concomitant]
     Dosage: 2 MG, UNK
     Route: 042
  5. ZOFRAN [Concomitant]
     Dosage: 4 MG, UNK
     Route: 042
  6. EPHEDRINE [Concomitant]
     Dosage: 6 MG, UNK
     Route: 042

REACTIONS (3)
  - LOSS OF CONSCIOUSNESS [None]
  - CARDIAC ARREST [None]
  - HYPOTENSION [None]
